FAERS Safety Report 4835014-0 (Version None)
Quarter: 2005Q4

REPORT INFORMATION
  Report Type: 
  Country: None (occurrence: None)
  Receive Date: 20051114
  Receipt Date: 20051102
  Transmission Date: 20060501
  Serious: Yes (Hospitalization)
  Sender: FDA-Public Use
  Company Number: 2005150165

PATIENT
  Age: 73 Year
  Sex: Male
  Weight: 60.3284 kg

DRUGS (2)
  1. CAMPTOSAR [Suspect]
     Indication: RECTAL CANCER
     Dosage: 50 MG (50 MG, CYCLIC INTERVAL: EVERY WEEK) INTRAVENOUS
     Route: 042
     Dates: start: 20051010
  2. HYDROCODONE [Concomitant]

REACTIONS (6)
  - ABDOMINAL PAIN [None]
  - ASTHENIA [None]
  - DIARRHOEA [None]
  - GASTROENTERITIS RADIATION [None]
  - NAUSEA [None]
  - VOMITING [None]
